FAERS Safety Report 8057428-0 (Version None)
Quarter: 2012Q1

REPORT INFORMATION
  Report Type: 
  Country: None (occurrence: None)
  Receive Date: 20120119
  Receipt Date: 20120118
  Transmission Date: 20120608
  Serious: Yes (Other)
  Sender: FDA-Public Use
  Company Number: US-ROCHE-783586

PATIENT
  Age: 27 Year
  Sex: Female
  Weight: 61.29 kg

DRUGS (3)
  1. ACCUTANE [Suspect]
     Indication: ACNE
  2. ACCUTANE [Suspect]
     Route: 048
     Dates: start: 20010101, end: 20020501
  3. ACCUTANE [Suspect]
     Dates: start: 20051101, end: 20060301

REACTIONS (6)
  - INFLAMMATORY BOWEL DISEASE [None]
  - COLITIS ULCERATIVE [None]
  - ANXIETY [None]
  - CHAPPED LIPS [None]
  - DRY SKIN [None]
  - ACNE [None]
